FAERS Safety Report 16598562 (Version 3)
Quarter: 2019Q4

REPORT INFORMATION
  Report Type: Spontaneous
  Country: RO (occurrence: RO)
  Receive Date: 20190719
  Receipt Date: 20191209
  Transmission Date: 20200122
  Serious: Yes (Hospitalization, Other)
  Sender: FDA-Public Use
  Company Number: RO-MYLANLABS-2019M1066860

PATIENT
  Age: 25 Year
  Sex: Female

DRUGS (6)
  1. SILDENAFIL. [Suspect]
     Active Substance: SILDENAFIL
     Indication: PULMONARY HYPERTENSION
     Dosage: 60 MILLIGRAM, QD (20 MG, TID)
     Route: 048
  2. BOSENTAN. [Suspect]
     Active Substance: BOSENTAN
     Indication: RIGHT-TO-LEFT CARDIAC SHUNT
     Dosage: UNK
  3. BOSENTAN. [Suspect]
     Active Substance: BOSENTAN
     Indication: PULMONARY HYPERTENSION
     Dosage: 250 MILLIGRAM, QD (125 MG, BID)
     Route: 048
  4. BOSENTAN. [Suspect]
     Active Substance: BOSENTAN
     Indication: SECONDARY HYPERTENSION
  5. SILDENAFIL. [Suspect]
     Active Substance: SILDENAFIL
     Indication: SECONDARY HYPERTENSION
  6. SILDENAFIL. [Suspect]
     Active Substance: SILDENAFIL
     Indication: RIGHT-TO-LEFT CARDIAC SHUNT
     Dosage: UNK

REACTIONS (19)
  - Oxygen saturation decreased [Unknown]
  - General physical condition abnormal [Unknown]
  - Iron deficiency [Unknown]
  - Ocular hyperaemia [Unknown]
  - Headache [Unknown]
  - Fatigue [Unknown]
  - Adrenal neoplasm [Unknown]
  - Pulmonary vascular resistance abnormality [Unknown]
  - Tricuspid valve incompetence [Unknown]
  - Cyanosis [Unknown]
  - Haemoptysis [Unknown]
  - Dyspnoea [Recovering/Resolving]
  - Vertigo [Unknown]
  - Thrombocytopenia [Recovered/Resolved]
  - Cough [Unknown]
  - Pulmonary hypertension [Unknown]
  - Phlebotomy [Unknown]
  - Drug ineffective [Unknown]
  - Myalgia [Unknown]
